FAERS Safety Report 10466247 (Version 1)
Quarter: 2014Q3

REPORT INFORMATION
  Report Type: Spontaneous
  Country: US (occurrence: None)
  Receive Date: 20140918
  Receipt Date: 20140918
  Transmission Date: 20150326
  Serious: Yes (Life-Threatening)
  Sender: FDA-Public Use
  Company Number: FK201403667

PATIENT
  Age: 59 Year
  Sex: Male

DRUGS (3)
  1. DOXYCYCLINE. [Suspect]
     Active Substance: DOXYCYCLINE
     Indication: INFLUENZA LIKE ILLNESS
  2. METHADONE [Suspect]
     Active Substance: METHADONE HYDROCHLORIDE
     Indication: PAIN
  3. MORPHINE (MORPHINE) [Concomitant]

REACTIONS (6)
  - Sinus bradycardia [None]
  - Drug interaction [None]
  - Electrocardiogram QT prolonged [None]
  - Hypokalaemia [None]
  - Ventricular tachycardia [None]
  - Unresponsive to stimuli [None]
